FAERS Safety Report 13889410 (Version 1)
Quarter: 2017Q3

REPORT INFORMATION
  Report Type: Spontaneous
  Country: US (occurrence: US)
  Receive Date: 20170822
  Receipt Date: 20170822
  Transmission Date: 20171127
  Serious: Yes (Other)
  Sender: FDA-Public Use
  Company Number: US-ENDO PHARMACEUTICALS INC-2017-002591

PATIENT
  Sex: Male

DRUGS (1)
  1. TESTOPEL [Suspect]
     Active Substance: TESTOSTERONE
     Indication: BLOOD TESTOSTERONE DECREASED
     Dosage: SIX 75 MG PELLETS (450 MG)
     Route: 058
     Dates: start: 2017, end: 2017

REACTIONS (1)
  - Polycythaemia [Unknown]

NARRATIVE: CASE EVENT DATE: 2017
